FAERS Safety Report 5640625-9 (Version None)
Quarter: 2008Q1

REPORT INFORMATION
  Report Type: 
  Country: None (occurrence: None)
  Receive Date: 20080227
  Receipt Date: 20080220
  Transmission Date: 20080703
  Serious: Yes (Death, Life-Threatening)
  Sender: FDA-Public Use
  Company Number: IN-GENENTECH-256502

PATIENT
  Age: 49 Year
  Sex: Male

DRUGS (1)
  1. ACTIVASE [Suspect]
     Indication: ISCHAEMIC STROKE
     Dosage: 50 MG, UNK
     Route: 042
     Dates: start: 20080110

REACTIONS (2)
  - DEATH [None]
  - INFARCTION [None]
